FAERS Safety Report 24996115 (Version 3)
Quarter: 2025Q3

REPORT INFORMATION
  Report Type: Spontaneous
  Country: US (occurrence: US)
  Receive Date: 20250221
  Receipt Date: 20250820
  Transmission Date: 20251021
  Serious: No
  Sender: CATALYST PHARMA
  Company Number: US-CATALYST PHARMACEUTICALS-US-CATA-25-00086

PATIENT
  Age: 14 Year
  Sex: Male
  Weight: 55 kg

DRUGS (7)
  1. AGAMREE [Suspect]
     Active Substance: VAMOROLONE
     Indication: Duchenne muscular dystrophy
     Dosage: 7.5 ML (300 MG) DAILY
     Route: 048
     Dates: start: 20241109
  2. DUVYZAT [Concomitant]
     Active Substance: GIVINOSTAT
     Indication: Duchenne muscular dystrophy
     Dosage: 5 ML TWICE DAILY
     Route: 048
  3. DUVYZAT [Concomitant]
     Active Substance: GIVINOSTAT
     Dosage: 3.5 ML TWICE A DAY
     Route: 065
  4. CALCIUM CARBONATE\VITAMIN D [Concomitant]
     Active Substance: CALCIUM CARBONATE\VITAMIN D
     Indication: Bone disorder
     Dosage: 600/10 MCG DAILY
     Route: 048
  5. PERINDOPRIL ERBUMINE [Concomitant]
     Active Substance: PERINDOPRIL ERBUMINE
     Indication: Cardiac disorder
     Dosage: 2 MG DAILY
     Route: 048
  6. SPIRONOLACTONE [Concomitant]
     Active Substance: SPIRONOLACTONE
     Indication: Cardiac disorder
     Dosage: 25 MG ONCE A DAY
     Route: 048
  7. VITAMIN D3 [Concomitant]
     Active Substance: CHOLECALCIFEROL
     Indication: Bone disorder
     Dosage: 2000 UNITS ONCE A DAY
     Route: 065

REACTIONS (4)
  - Stubbornness [Unknown]
  - Frustration tolerance decreased [Unknown]
  - Anger [Unknown]
  - Weight increased [Not Recovered/Not Resolved]

NARRATIVE: CASE EVENT DATE: 20241101
